FAERS Safety Report 25878005 (Version 1)
Quarter: 2025Q4

REPORT INFORMATION
  Report Type: Spontaneous
  Country: US (occurrence: None)
  Receive Date: 20251003
  Receipt Date: 20251003
  Transmission Date: 20260117
  Serious: Yes (Other)
  Sender: FDA-CTU
  Company Number: None

PATIENT
  Age: 55 Year
  Sex: Female

DRUGS (1)
  1. TERIFLUNOMIDE [Suspect]
     Active Substance: TERIFLUNOMIDE
     Indication: Multiple sclerosis
     Dosage: 14MG DAILY

REACTIONS (7)
  - Multiple sclerosis relapse [None]
  - Cerebrovascular accident [None]
  - Back pain [None]
  - Depression [None]
  - Feeling of despair [None]
  - Decreased interest [None]
  - Drug ineffective [None]
